FAERS Safety Report 8610492-X (Version None)
Quarter: 2012Q3

REPORT INFORMATION
  Report Type: 
  Country: None (occurrence: None)
  Receive Date: 20120822
  Receipt Date: 20120815
  Transmission Date: 20120928
  Serious: No
  Sender: FDA-Public Use
  Company Number: US-PFIZER INC-2012202027

PATIENT
  Age: 34 Year
  Sex: Male
  Weight: 83.9 kg

DRUGS (1)
  1. ZOLOFT [Suspect]
     Dosage: UNK

REACTIONS (2)
  - DRUG WITHDRAWAL SYNDROME [None]
  - ANXIETY [None]
